FAERS Safety Report 11552817 (Version 1)
Quarter: 2015Q3

REPORT INFORMATION
  Report Type: Spontaneous
  Country: US (occurrence: None)
  Receive Date: 20150924
  Receipt Date: 20150924
  Transmission Date: 20151125
  Serious: No
  Sender: FDA-Public Use
  Company Number: None

PATIENT
  Age: 59 Year
  Sex: Male

DRUGS (1)
  1. SOVALDI [Suspect]
     Active Substance: SOFOSBUVIR
     Indication: MULTIPLE ALLERGIES
     Dates: start: 20150905

REACTIONS (1)
  - Fatigue [None]

NARRATIVE: CASE EVENT DATE: 20150908
